FAERS Safety Report 6146676-2 (Version None)
Quarter: 2009Q2

REPORT INFORMATION
  Report Type: 
  Country: None (occurrence: None)
  Receive Date: 20090407
  Receipt Date: 20090324
  Transmission Date: 20091009
  Serious: Yes (Other)
  Sender: FDA-Public Use
  Company Number: IE-GENENTECH-280326

PATIENT
  Sex: Female

DRUGS (1)
  1. XOLAIR [Suspect]
     Indication: ASTHMA
     Dosage: 300 MG, 2/WEEK
     Route: 058

REACTIONS (3)
  - HEADACHE [None]
  - LOWER RESPIRATORY TRACT INFECTION [None]
  - WHEEZING [None]
